FAERS Safety Report 14623659 (Version 1)
Quarter: 2018Q1

REPORT INFORMATION
  Report Type: Spontaneous
  Country: US (occurrence: US)
  Receive Date: 20180309
  Receipt Date: 20180309
  Transmission Date: 20180509
  Serious: No
  Sender: FDA-Public Use
  Company Number: None

PATIENT
  Age: 53 Year
  Sex: Female

DRUGS (1)
  1. STELARA [Suspect]
     Active Substance: USTEKINUMAB
     Indication: PSORIASIS

REACTIONS (5)
  - Skin tightness [None]
  - Dry skin [None]
  - Erythema [None]
  - Drug ineffective [None]
  - Skin exfoliation [None]

NARRATIVE: CASE EVENT DATE: 20180309
